FAERS Safety Report 9008593 (Version 1)
Quarter: 2013Q1

REPORT INFORMATION
  Report Type: Report from Study
  Country: US (occurrence: US)
  Receive Date: 20130111
  Receipt Date: 20130111
  Transmission Date: 20140127
  Serious: No
  Sender: FDA-Public Use
  Company Number: US-VERTEX PHARMACEUTICALS INC.-2013-000486

PATIENT
  Sex: Female
  Weight: 56.69 kg

DRUGS (6)
  1. VX-950 (TELAPREVIR) [Suspect]
     Indication: HEPATITIS C
     Dosage: 375 MG, TID
     Route: 048
  2. PEGASYS [Suspect]
     Indication: HEPATITIS C
     Route: 058
  3. RIBAVIRIN [Suspect]
     Indication: HEPATITIS C
     Route: 048
  4. ORTHO-NOVUM                        /00013701/ [Concomitant]
  5. ATENOLOL [Concomitant]
  6. PROCRIT                            /00909301/ [Concomitant]

REACTIONS (2)
  - Sinus tachycardia [Unknown]
  - Anaemia [Unknown]
